FAERS Safety Report 12705486 (Version 1)
Quarter: 2016Q3

REPORT INFORMATION
  Report Type: Spontaneous
  Country: US (occurrence: None)
  Receive Date: 20160831
  Receipt Date: 20160831
  Transmission Date: 20161109
  Serious: Yes (Hospitalization)
  Sender: FDA-Public Use
  Company Number: None

PATIENT
  Age: 69 Year
  Sex: Female
  Weight: 70.76 kg

DRUGS (9)
  1. TAXOL [Suspect]
     Active Substance: PACLITAXEL
     Dates: end: 20160729
  2. DEXAMETHASONE. [Concomitant]
     Active Substance: DEXAMETHASONE
  3. CARBOPLATIN. [Suspect]
     Active Substance: CARBOPLATIN
     Dates: end: 20160729
  4. FUROSEMIDE. [Concomitant]
     Active Substance: FUROSEMIDE
  5. NORCO [Concomitant]
     Active Substance: ACETAMINOPHEN\HYDROCODONE BITARTRATE
  6. ONDANSETRON [Concomitant]
     Active Substance: ONDANSETRON
  7. FENTANYL. [Concomitant]
     Active Substance: FENTANYL
  8. NAPROXEN. [Concomitant]
     Active Substance: NAPROXEN
  9. SENNA [Concomitant]
     Active Substance: SENNA LEAF\SENNOSIDES\SENNOSIDES A AND B

REACTIONS (5)
  - Dehydration [None]
  - Diarrhoea [None]
  - Asthenia [None]
  - Fatigue [None]
  - Drug intolerance [None]

NARRATIVE: CASE EVENT DATE: 20160809
